FAERS Safety Report 9691358 (Version 1)
Quarter: 2013Q4

REPORT INFORMATION
  Report Type: Spontaneous
  Country: US (occurrence: US)
  Receive Date: 20131115
  Receipt Date: 20131115
  Transmission Date: 20140711
  Serious: Yes (Other)
  Sender: FDA-Public Use
  Company Number: US-BRISTOL-MYERS SQUIBB COMPANY-19779776

PATIENT
  Age: 36 Year
  Sex: Male
  Weight: 99.77 kg

DRUGS (2)
  1. ABILIFY [Suspect]
     Indication: OBSESSIVE-COMPULSIVE DISORDER
     Dosage: INITIALLY 15MG
  2. ABILIFY [Suspect]
     Indication: ANXIETY
     Dosage: INITIALLY 15MG

REACTIONS (8)
  - Infertility male [Unknown]
  - Weight increased [Unknown]
  - Anxiety [Unknown]
  - Hyperhidrosis [Unknown]
  - Blood cholesterol increased [Unknown]
  - Glycosylated haemoglobin increased [Unknown]
  - Dry mouth [Unknown]
  - Off label use [Unknown]
